FAERS Safety Report 6772230-5 (Version None)
Quarter: 2010Q2

REPORT INFORMATION
  Report Type: 
  Country: None (occurrence: None)
  Receive Date: 20100614
  Receipt Date: 20100530
  Transmission Date: 20101027
  Serious: Yes (Other)
  Sender: FDA-Public Use
  Company Number: 008965

PATIENT
  Age: 30 Year
  Sex: Female

DRUGS (4)
  1. KEPPRA [Suspect]
     Indication: CONVULSION
     Dosage: 3750 MG ORAL
     Route: 048
     Dates: start: 20060303
  2. TRILEPTAL [Concomitant]
  3. PROZAC /00724401/ [Concomitant]
  4. CLONAZEPAM [Concomitant]

REACTIONS (2)
  - DRUG EXPOSURE DURING PREGNANCY [None]
  - PETIT MAL EPILEPSY [None]
